FAERS Safety Report 14258347 (Version 1)
Quarter: 2017Q4

REPORT INFORMATION
  Report Type: Spontaneous
  Country: US (occurrence: US)
  Receive Date: 20171206
  Receipt Date: 20171206
  Transmission Date: 20180321
  Serious: Yes (Disabling)
  Sender: FDA-Public Use
  Company Number: None

PATIENT
  Age: 50 Year
  Sex: Female
  Weight: 56.25 kg

DRUGS (9)
  1. IMITREX [Concomitant]
     Active Substance: SUMATRIPTAN SUCCINATE
  2. VITAMIN D [Concomitant]
     Active Substance: CHOLECALCIFEROL
  3. COPAXONE [Suspect]
     Active Substance: GLATIRAMER ACETATE
     Indication: MULTIPLE SCLEROSIS
     Dosage: ?          QUANTITY:1 INJECTION(S);OTHER FREQUENCY:3 TIMES A WEEK;?
     Route: 058
     Dates: start: 20170705
  4. ZANTAC [Concomitant]
     Active Substance: RANITIDINE HYDROCHLORIDE
  5. TUMERIC [Concomitant]
     Active Substance: HERBALS\TURMERIC
  6. LUNESTA [Concomitant]
     Active Substance: ESZOPICLONE
  7. PROBIOTICS [Concomitant]
     Active Substance: PROBIOTICS NOS
  8. MAGNESIUM [Concomitant]
     Active Substance: MAGNESIUM
  9. CRANBERRY. [Concomitant]
     Active Substance: CRANBERRY

REACTIONS (2)
  - Blood cholesterol increased [None]
  - Low density lipoprotein increased [None]

NARRATIVE: CASE EVENT DATE: 20171206
